FAERS Safety Report 14192069 (Version 1)
Quarter: 2017Q4

REPORT INFORMATION
  Report Type: Spontaneous
  Country: US (occurrence: US)
  Receive Date: 20171115
  Receipt Date: 20171115
  Transmission Date: 20180321
  Serious: No
  Sender: FDA-Public Use
  Company Number: US-PERRIGO-17US024102

PATIENT
  Age: 52 Year
  Sex: Female
  Weight: 70.3 kg

DRUGS (1)
  1. NICOTINE POLACRILEX [Suspect]
     Active Substance: NICOTINE
     Indication: SMOKING CESSATION THERAPY
     Dosage: 4 MG, 3 TO 4 TIMES DAILY
     Route: 002
     Dates: start: 20170527, end: 20170530

REACTIONS (4)
  - Chest discomfort [Recovering/Resolving]
  - Dyspepsia [Recovered/Resolved]
  - Vomiting [Recovered/Resolved]
  - Nausea [Recovered/Resolved]

NARRATIVE: CASE EVENT DATE: 20170528
